FAERS Safety Report 7999722-5 (Version None)
Quarter: 2011Q4

REPORT INFORMATION
  Report Type: 
  Country: None (occurrence: None)
  Receive Date: 20111221
  Receipt Date: 20111208
  Transmission Date: 20120403
  Serious: Yes (Life-Threatening)
  Sender: FDA-Public Use
  Company Number: ES-MYLANLABS-2011S1025707

PATIENT
  Sex: Male

DRUGS (3)
  1. PRAMIPEXOLE DIHYDROCHLORIDE [Suspect]
     Indication: PARKINSON'S DISEASE
     Dosage: 25 MG/DAY
     Route: 065
  2. CARBIDOPA AND LEVODOPA [Suspect]
     Indication: PARKINSON'S DISEASE
     Dosage: 300/150 MG/DAY
     Route: 065
  3. GABAPENTIN [Concomitant]
     Indication: PARKINSON'S DISEASE
     Dosage: 900 MG/DAY
     Route: 065

REACTIONS (3)
  - SUICIDE ATTEMPT [None]
  - IMPULSE-CONTROL DISORDER [None]
  - JEALOUS DELUSION [None]
